FAERS Safety Report 12850774 (Version 2)
Quarter: 2016Q4

REPORT INFORMATION
  Report Type: Report from Study
  Country: KR (occurrence: KR)
  Receive Date: 20161014
  Receipt Date: 20161103
  Transmission Date: 20170207
  Serious: Yes (Death, Hospitalization, Other)
  Sender: FDA-Public Use
  Company Number: KR-GILEAD-2016-0237366

PATIENT
  Age: 64 Year
  Sex: Female
  Weight: 49 kg

DRUGS (5)
  1. SILYMARIN [Concomitant]
     Active Substance: MILK THISTLE
     Dosage: 140 MG, BID
     Route: 048
     Dates: start: 20160519, end: 20160625
  2. MOSAPRIDE [Concomitant]
     Active Substance: MOSAPRIDE
     Dosage: 5 MG, TID
     Dates: start: 20160519, end: 20160625
  3. LEDIPASVIR/SOFOSBUVIR [Suspect]
     Active Substance: LEDIPASVIR\SOFOSBUVIR
     Indication: HEPATITIS C
     Dosage: UNK
     Route: 065
  4. BEECOM [Concomitant]
     Dosage: UNK
     Route: 048
     Dates: start: 20160519, end: 20160625
  5. LACTULOSE. [Concomitant]
     Active Substance: LACTULOSE
     Dosage: 20 ML, BID
     Route: 048
     Dates: start: 20160519, end: 20160625

REACTIONS (6)
  - Hypoglycaemia [Unknown]
  - Depressed level of consciousness [Unknown]
  - Septic shock [Fatal]
  - Renal impairment [Unknown]
  - Circulatory collapse [Unknown]
  - Acute on chronic liver failure [Unknown]

NARRATIVE: CASE EVENT DATE: 20160626
